FAERS Safety Report 17737159 (Version 1)
Quarter: 2020Q2

REPORT INFORMATION
  Report Type: Spontaneous
  Country: CA (occurrence: CA)
  Receive Date: 20200502
  Receipt Date: 20200502
  Transmission Date: 20200714
  Serious: Yes (Hospitalization)
  Sender: FDA-Public Use
  Company Number: CA-TEVA-2020-CA-1229027

PATIENT
  Age: 11 Year
  Sex: Male
  Weight: 23 kg

DRUGS (14)
  1. GABAPENTIN. [Concomitant]
     Active Substance: GABAPENTIN
  2. MESNA. [Concomitant]
     Active Substance: MESNA
  3. METOCLOPRAMIDE. [Concomitant]
     Active Substance: METOCLOPRAMIDE
  4. ZOFRAN [Concomitant]
     Active Substance: ONDANSETRON HYDROCHLORIDE
  5. VINCRISTINE SULFATE INJECTION [Suspect]
     Active Substance: VINCRISTINE SULFATE
     Indication: METASTASIS
     Route: 042
  6. POLYETHYLENE GLYCOL [Concomitant]
     Active Substance: POLYETHYLENE GLYCOLS
  7. PROZAC [Concomitant]
     Active Substance: FLUOXETINE HYDROCHLORIDE
  8. VINCRISTINE SULFATE INJECTION [Suspect]
     Active Substance: VINCRISTINE SULFATE
     Indication: MEDULLOBLASTOMA
  9. CARBOPLATIN INJECTION [Suspect]
     Active Substance: CARBOPLATIN
     Indication: METASTASIS
     Route: 042
  10. ACETAMINOPHEN. [Concomitant]
     Active Substance: ACETAMINOPHEN
  11. DEXTROSE. [Concomitant]
     Active Substance: DEXTROSE
  12. DIMENHYDRINATE. [Concomitant]
     Active Substance: DIMENHYDRINATE
  13. CARBOPLATIN INJECTION [Suspect]
     Active Substance: CARBOPLATIN
     Indication: MEDULLOBLASTOMA
  14. MAGNESIUM [Concomitant]
     Active Substance: MAGNESIUM

REACTIONS (4)
  - Erythema [Recovered/Resolved]
  - Skin irritation [Recovered/Resolved]
  - Neutrophil count decreased [Recovered/Resolved]
  - Pyrexia [Recovered/Resolved]
